FAERS Safety Report 5852846-0 (Version None)
Quarter: 2008Q3

REPORT INFORMATION
  Report Type: 
  Country: None (occurrence: None)
  Receive Date: 20080814
  Receipt Date: 20080502
  Transmission Date: 20090109
  Serious: Yes (Hospitalization)
  Sender: FDA-Public Use
  Company Number: 2008ST000099

PATIENT
  Sex: Female

DRUGS (1)
  1. ZEGERID [Suspect]
     Indication: GASTROOESOPHAGEAL REFLUX DISEASE
     Dosage: 40 MG;QD;PO
     Route: 048
     Dates: start: 20080301

REACTIONS (3)
  - ANOREXIA [None]
  - DIARRHOEA [None]
  - NAUSEA [None]
